FAERS Safety Report 7110303-8 (Version None)
Quarter: 2010Q4

REPORT INFORMATION
  Report Type: 
  Country: None (occurrence: None)
  Receive Date: 20101117
  Receipt Date: 20101117
  Transmission Date: 20110411
  Serious: Yes (Hospitalization)
  Sender: FDA-Public Use
  Company Number: None

PATIENT
  Age: 45 Year
  Sex: Female

DRUGS (2)
  1. THYROGEN [Suspect]
     Dosage: .9 MG ONCE 030
     Dates: start: 20101011
  2. THYROGEN [Suspect]
     Dosage: .9MG ONCE 030
     Dates: start: 20101012

REACTIONS (3)
  - MUSCLE SPASMS [None]
  - PHARYNGEAL DISORDER [None]
  - PHARYNGEAL OEDEMA [None]
